FAERS Safety Report 5903238-7 (Version None)
Quarter: 2008Q3

REPORT INFORMATION
  Report Type: 
  Country: None (occurrence: None)
  Receive Date: 20080926
  Receipt Date: 20080915
  Transmission Date: 20090109
  Serious: Yes (Hospitalization)
  Sender: FDA-Public Use
  Company Number: 238766J08USA

PATIENT
  Age: 38 Year
  Sex: Female
  Weight: 61.36 kg

DRUGS (4)
  1. REBIF [Suspect]
     Indication: MULTIPLE SCLEROSIS
     Dosage: 44 MCG, 3 IN 1 WEEKS, SUBCUTANEOUS
     Route: 058
     Dates: start: 20080613
  2. VICODIN [Concomitant]
  3. NEURONTIN [Concomitant]
  4. ROBAXIN [Concomitant]

REACTIONS (4)
  - BLOOD THYROID STIMULATING HORMONE INCREASED [None]
  - PANCREATITIS [None]
  - PARATHYROID TUMOUR BENIGN [None]
  - WEIGHT DECREASED [None]
